FAERS Safety Report 13045779 (Version 1)
Quarter: 2016Q4

REPORT INFORMATION
  Report Type: Spontaneous
  Country: US (occurrence: US)
  Receive Date: 20161220
  Receipt Date: 20161220
  Transmission Date: 20170207
  Serious: Yes (Other)
  Sender: FDA-Public Use
  Company Number: None

PATIENT
  Age: 80 Year
  Sex: Female
  Weight: 74 kg

DRUGS (17)
  1. MELATONIN [Concomitant]
     Active Substance: MELATONIN
  2. LISINOPRIL. [Concomitant]
     Active Substance: LISINOPRIL
  3. ASA [Concomitant]
     Active Substance: ASPIRIN
  4. LAMICTAL [Concomitant]
     Active Substance: LAMOTRIGINE
  5. TYLENOL [Concomitant]
     Active Substance: ACETAMINOPHEN
  6. HYDRALAZIDE [Concomitant]
  7. CARDIZEM [Concomitant]
     Active Substance: DILTIAZEM HYDROCHLORIDE
  8. TUMS [Concomitant]
     Active Substance: CALCIUM CARBONATE
  9. OMEPRAZOLE. [Concomitant]
     Active Substance: OMEPRAZOLE
  10. IRON [Concomitant]
     Active Substance: IRON
  11. GLYPIZIDE [Concomitant]
     Active Substance: GLIPIZIDE
  12. TUMERIC [Concomitant]
     Active Substance: TURMERIC
  13. VICADIN [Concomitant]
  14. FIBER [Concomitant]
     Active Substance: PSYLLIUM HUSK
  15. METFORMIN [Concomitant]
     Active Substance: METFORMIN HYDROCHLORIDE
  16. ASPERCREME WITH LIDOCAINE PAIN RELIEVING CREME [Suspect]
     Active Substance: LIDOCAINE HYDROCHLORIDE
     Indication: OSTEOARTHRITIS
     Dosage: LIDOCAINE 4% TOPICAL-THIN LAYER Q6-8H ONLY ON THE SKIN
     Route: 061
     Dates: start: 20161010, end: 20161011
  17. VITAMIN D3 [Concomitant]
     Active Substance: CHOLECALCIFEROL

REACTIONS (3)
  - Atrial flutter [None]
  - Arthralgia [None]
  - Radial pulse decreased [None]

NARRATIVE: CASE EVENT DATE: 20161010
